FAERS Safety Report 25369673 (Version 1)
Quarter: 2025Q2

REPORT INFORMATION
  Report Type: Spontaneous
  Country: US (occurrence: US)
  Receive Date: 20250528
  Receipt Date: 20250528
  Transmission Date: 20250716
  Serious: Yes (Other)
  Sender: ELI LILLY AND COMPANY
  Company Number: US-ELI_LILLY_AND_COMPANY-US202505016726

PATIENT
  Age: 50 Year
  Sex: Female

DRUGS (2)
  1. TALTZ [Suspect]
     Active Substance: IXEKIZUMAB
     Indication: Product used for unknown indication
     Route: 065
     Dates: start: 202201
  2. TALTZ [Suspect]
     Active Substance: IXEKIZUMAB
     Indication: Product used for unknown indication
     Route: 065
     Dates: start: 202201

REACTIONS (10)
  - Myocardial infarction [Recovered/Resolved]
  - Alopecia [Not Recovered/Not Resolved]
  - Blood glucose decreased [Unknown]
  - Presyncope [Unknown]
  - Hyperhidrosis [Unknown]
  - Tremor [Unknown]
  - Dizziness [Unknown]
  - Psoriasis [Not Recovered/Not Resolved]
  - Localised infection [Unknown]
  - Decreased immune responsiveness [Unknown]

NARRATIVE: CASE EVENT DATE: 20230101
